FAERS Safety Report 4277197-X (Version None)
Quarter: 2004Q1

REPORT INFORMATION
  Report Type: 
  Country: None (occurrence: None)
  Receive Date: 20040120
  Receipt Date: 20040115
  Transmission Date: 20041129
  Serious: Yes (Other)
  Sender: FDA-Public Use
  Company Number: 200410042BVD

PATIENT

DRUGS (1)
  1. AVELOX [Suspect]

REACTIONS (2)
  - CRANIAL NERVE PARALYSIS [None]
  - VAGUS NERVE DISORDER [None]
